FAERS Safety Report 12757038 (Version 2)
Quarter: 2016Q3

REPORT INFORMATION
  Report Type: Spontaneous
  Country: US (occurrence: US)
  Receive Date: 20160918
  Receipt Date: 20160924
  Transmission Date: 20161109
  Serious: No
  Sender: FDA-Public Use
  Company Number: US-B.I. PHARMACEUTICALS,INC./RIDGEFIELD-2016-BI-60223BP

PATIENT
  Age: 66 Year
  Sex: Female

DRUGS (6)
  1. FLOVENT [Concomitant]
     Active Substance: FLUTICASONE PROPIONATE
     Indication: ASTHMA
     Dosage: 1760 MCG
     Route: 055
  2. ATROVENT [Suspect]
     Active Substance: IPRATROPIUM BROMIDE
     Indication: ASTHMA
     Dosage: 68 MCG
     Route: 055
     Dates: start: 2004
  3. SYNTHROID [Concomitant]
     Active Substance: LEVOTHYROXINE SODIUM
     Indication: CONGENITAL THYROID DISORDER
     Dosage: 112 MCG
     Route: 048
     Dates: start: 2001
  4. ZAFIRLUKAST. [Concomitant]
     Active Substance: ZAFIRLUKAST
     Indication: ASTHMA
     Dosage: 40 MG
     Route: 048
     Dates: start: 1996
  5. LISINOPRIL. [Concomitant]
     Active Substance: LISINOPRIL
     Indication: HYPERTENSION
     Dosage: 60 MG
     Route: 048
     Dates: start: 1994
  6. CARTIA XT [Concomitant]
     Active Substance: DILTIAZEM HYDROCHLORIDE
     Indication: HYPERTENSION
     Dosage: 180 MG
     Route: 048
     Dates: start: 2006

REACTIONS (7)
  - Joint swelling [Unknown]
  - Urticaria [Unknown]
  - Off label use [Recovered/Resolved]
  - Unevaluable event [Unknown]
  - Hypersensitivity [Not Recovered/Not Resolved]
  - Gait disturbance [Unknown]
  - Meniscus removal [Unknown]

NARRATIVE: CASE EVENT DATE: 2004
